FAERS Safety Report 7986564-X (Version None)
Quarter: 2011Q4

REPORT INFORMATION
  Report Type: 
  Country: None (occurrence: None)
  Receive Date: 20111216
  Receipt Date: 20111215
  Transmission Date: 20120403
  Serious: Yes (Life-Threatening, Hospitalization)
  Sender: FDA-Public Use
  Company Number: JP-B.I. PHARMACEUTICALS,INC./RIDGEFIELD-2011-BP-24915NB

PATIENT
  Sex: Female
  Weight: 40.7 kg

DRUGS (14)
  1. PRAVASTATIN SODIUM [Concomitant]
     Dosage: 5 MG
     Route: 048
  2. NITRAZEPAM [Concomitant]
     Dosage: 25 MG
     Route: 048
  3. BONOTEO [Concomitant]
     Dosage: 1 MG
     Route: 048
  4. NEUQUINON [Concomitant]
     Dosage: 20 MG
     Route: 048
  5. ATELEC [Concomitant]
     Dosage: 20 MG
     Route: 048
  6. DIQUAS [Concomitant]
     Route: 031
  7. HYALEIN [Concomitant]
     Route: 031
  8. EDIROL [Concomitant]
     Dosage: 0.75 MG
     Route: 048
  9. PRADAXA [Suspect]
     Indication: ATRIAL FIBRILLATION
     Dosage: 220 MG
     Route: 048
     Dates: start: 20110411
  10. RABEPRAZOLE SODIUM [Concomitant]
     Dosage: 10 MG
     Route: 048
  11. KENTAN [Concomitant]
     Route: 048
  12. VESICARE OD [Concomitant]
     Dosage: 5 MG
     Route: 048
  13. IMIDAPRIL HYDROCHLORIDE [Concomitant]
     Dosage: 10 MG
     Route: 048
  14. CARVEDILOL [Concomitant]
     Dosage: 5 MG
     Route: 048

REACTIONS (8)
  - GASTRIC ULCER HAEMORRHAGE [None]
  - HYPOTENSION [None]
  - GINGIVAL BLEEDING [None]
  - CARDIAC FAILURE CONGESTIVE [None]
  - DYSPHORIA [None]
  - TACHYCARDIA [None]
  - ANAEMIA [None]
  - HAEMORRHAGE SUBCUTANEOUS [None]
